FAERS Safety Report 9677166 (Version 2)
Quarter: 2015Q1

REPORT INFORMATION
  Report Type: Report from Study
  Country: US (occurrence: US)
  Receive Date: 20131108
  Receipt Date: 20150110
  Transmission Date: 20150721
  Serious: Yes (Hospitalization)
  Sender: FDA-Public Use
  Company Number: US-BRISTOL-MYERS SQUIBB COMPANY-19703974

PATIENT
  Age: 71 Year
  Sex: Male

DRUGS (15)
  1. BLINDED IPILIMUMAB [Suspect]
     Active Substance: IPILIMUMAB
     Indication: NON-SMALL CELL LUNG CANCER
     Dosage: 380MGX5DOSES-07JUN2013 TO 06SEP2013  318MGX1DOSES-04OCT2013 TO 04OCT2013
     Route: 042
     Dates: start: 20130607
  2. ASPIRIN. [Concomitant]
     Active Substance: ASPIRIN
     Indication: CARDIAC DISORDER
     Dosage: 81 MG, QD
     Route: 048
     Dates: start: 2010
  3. BLINDED CARBOPLATIN [Suspect]
     Active Substance: CARBOPLATIN
     Indication: NON-SMALL CELL LUNG CANCER
     Dosage: 850MG;2DOSES:07JUN13TO28JUN13  900MG;3DOSES-19JUL2013TO06SEP2013  750MG;1DOSES-04OCT2013
     Route: 042
     Dates: start: 20130607
  4. HYDROCODONE BITARTRATE AND ACETAMINOPHEN [Concomitant]
     Active Substance: ACETAMINOPHEN\HYDROCODONE BITARTRATE
     Indication: BACK PAIN
     Dosage: 1DF: 7.5MG/500MG
     Route: 048
     Dates: start: 20120820
  5. PREDNISONE. [Concomitant]
     Active Substance: PREDNISONE
     Indication: DIARRHOEA
     Dosage: 20 MG, QD
     Route: 048
  6. MULTI VITAMIN [Concomitant]
     Active Substance: VITAMINS
     Indication: VITAMIN SUPPLEMENTATION
     Dosage: 1DF: 1 TABLET
     Route: 048
     Dates: start: 20130523
  7. LOMOTIL [Concomitant]
     Active Substance: ATROPINE SULFATE\DIPHENOXYLATE HYDROCHLORIDE
     Indication: DIARRHOEA
     Dosage: 2.5 MG
     Route: 048
     Dates: start: 20130820
  8. BLINDED PACLITAXEL [Suspect]
     Active Substance: PACLITAXEL
     Indication: NON-SMALL CELL LUNG CANCER
     Dosage: 380MGX5DOSES-07JUN2013 TO 06SEP2013  318MGX1DOSES-04OCT2013 TO 04OCT2013
     Route: 042
     Dates: start: 20130607
  9. OFLOXACIN. [Concomitant]
     Active Substance: OFLOXACIN
     Indication: CONJUNCTIVITIS BACTERIAL
     Dosage: UNK
     Dates: start: 20130804
  10. BLINDED IPILIMUMAB [Suspect]
     Active Substance: IPILIMUMAB
     Indication: NON-SMALL CELL LUNG CANCER
     Dosage: 932 MG, QD
     Route: 042
     Dates: start: 20130719
  11. PLACEBO [Suspect]
     Active Substance: UNSPECIFIED INGREDIENT
     Indication: NON-SMALL CELL LUNG CANCER
     Dosage: 932 MG, QD
     Route: 042
     Dates: start: 20130719
  12. BLINDED IPILIMUMAB [Suspect]
     Active Substance: IPILIMUMAB
     Indication: NON-SMALL CELL LUNG CANCER
     Dosage: 850MG;2DOSES:07JUN13TO28JUN13  900MG;3DOSES-19JUL2013TO06SEP2013  750MG;1DOSES-04OCT2013
     Route: 042
     Dates: start: 20130607
  13. PLACEBO [Suspect]
     Active Substance: UNSPECIFIED INGREDIENT
     Indication: NON-SMALL CELL LUNG CANCER
     Dosage: 380MGX5DOSES-07JUN2013 TO 06SEP2013  318MGX1DOSES-04OCT2013 TO 04OCT2013
     Route: 042
     Dates: start: 20130607
  14. PLACEBO [Suspect]
     Active Substance: UNSPECIFIED INGREDIENT
     Indication: NON-SMALL CELL LUNG CANCER
     Dosage: 850MG;2DOSES:07JUN13TO28JUN13  900MG;3DOSES-19JUL2013TO06SEP2013  750MG;1DOSES-04OCT2013
     Route: 042
     Dates: start: 20130607
  15. FISH OIL [Concomitant]
     Active Substance: FISH OIL
     Indication: DYSLIPIDAEMIA
     Dosage: 1000 MG, QD
     Route: 048
     Dates: start: 2010

REACTIONS (1)
  - Pneumonia [Not Recovered/Not Resolved]

NARRATIVE: CASE EVENT DATE: 20131019
